FAERS Safety Report 13108605 (Version 2)
Quarter: 2017Q1

REPORT INFORMATION
  Report Type: Report from Study
  Country: US (occurrence: US)
  Receive Date: 20170112
  Receipt Date: 20170202
  Transmission Date: 20170428
  Serious: Yes (Death, Life-Threatening, Hospitalization, Other)
  Sender: FDA-Public Use
  Company Number: US-009507513-1701USA003174

PATIENT
  Sex: Female

DRUGS (1)
  1. KEYTRUDA [Suspect]
     Active Substance: PEMBROLIZUMAB
     Indication: CERVIX CARCINOMA
     Dosage: UNK UNK, UNKNOWN
     Route: 042

REACTIONS (6)
  - Adverse reaction [Not Recovered/Not Resolved]
  - Death [Fatal]
  - Neoplasm malignant [Not Recovered/Not Resolved]
  - Paraneoplastic encephalomyelitis [Not Recovered/Not Resolved]
  - Seizure [Unknown]
  - Off label use [Unknown]
